FAERS Safety Report 12013002 (Version 16)
Quarter: 2024Q2

REPORT INFORMATION
  Report Type: Report from Study
  Country: GR (occurrence: GR)
  Receive Date: 20160205
  Receipt Date: 20240412
  Transmission Date: 20240715
  Serious: Yes (Hospitalization)
  Sender: FDA-Public Use
  Company Number: GR-SA-2016SA017692

PATIENT
  Age: 39 Year
  Sex: Female
  Weight: 50 kg

DRUGS (31)
  1. ALEMTUZUMAB [Suspect]
     Active Substance: ALEMTUZUMAB
     Indication: Relapsing multiple sclerosis
     Dosage: 12 MG,QD TIME: 12:00
     Route: 041
     Dates: start: 20160118, end: 20160120
  2. ALEMTUZUMAB [Suspect]
     Active Substance: ALEMTUZUMAB
     Dosage: 6 MG,QD
     Route: 041
     Dates: start: 20160121, end: 20160121
  3. ALEMTUZUMAB [Suspect]
     Active Substance: ALEMTUZUMAB
     Dosage: 12 MG, QD
     Route: 041
     Dates: start: 20170207, end: 20170209
  4. ALEMTUZUMAB [Suspect]
     Active Substance: ALEMTUZUMAB
     Dosage: 12 MG, QD
     Route: 041
     Dates: start: 20190902, end: 20190903
  5. THIOCOLCHICOSIDE [Concomitant]
     Active Substance: THIOCOLCHICOSIDE
     Indication: Drug therapy
     Dosage: 15 MG,QD
     Route: 048
     Dates: start: 2008
  6. THIOCOLCHICOSIDE [Concomitant]
     Active Substance: THIOCOLCHICOSIDE
     Indication: Bladder dysfunction
  7. ALFUZOSIN HYDROCHLORIDE [Concomitant]
     Active Substance: ALFUZOSIN HYDROCHLORIDE
     Indication: Drug therapy
     Dosage: 10 MG,QD
     Route: 048
     Dates: start: 2014
  8. ALFUZOSIN HYDROCHLORIDE [Concomitant]
     Active Substance: ALFUZOSIN HYDROCHLORIDE
     Indication: Bladder dysfunction
  9. XANAX [Concomitant]
     Active Substance: ALPRAZOLAM
     Indication: Drug therapy
     Dosage: .5 MG,QD
     Route: 048
     Dates: start: 201511
  10. XANAX [Concomitant]
     Active Substance: ALPRAZOLAM
     Indication: Psychotic disorder
  11. BUSPIRONE HYDROCHLORIDE [Concomitant]
     Active Substance: BUSPIRONE HYDROCHLORIDE
     Indication: Drug therapy
     Dosage: 30 MG,QD
     Route: 048
     Dates: start: 2010
  12. BUSPIRONE HYDROCHLORIDE [Concomitant]
     Active Substance: BUSPIRONE HYDROCHLORIDE
     Indication: Psychotic disorder
  13. LAMOTRIGINE [Concomitant]
     Active Substance: LAMOTRIGINE
     Indication: Drug therapy
     Dosage: 200 MG,QD
     Route: 048
     Dates: start: 2010
  14. LAMOTRIGINE [Concomitant]
     Active Substance: LAMOTRIGINE
     Indication: Psychotic disorder
  15. SEROQUEL [Concomitant]
     Active Substance: QUETIAPINE FUMARATE
     Indication: Drug therapy
     Dosage: 400 MG,QD
     Route: 048
     Dates: start: 2010
  16. SEROQUEL [Concomitant]
     Active Substance: QUETIAPINE FUMARATE
     Indication: Psychotic disorder
  17. PERONTEN [Concomitant]
     Indication: Drug therapy
     Dosage: 800 MG,QD
     Route: 048
     Dates: start: 201111
  18. PERONTEN [Concomitant]
     Indication: Psychotic disorder
  19. ESCITALOPRAM [Concomitant]
     Active Substance: ESCITALOPRAM OXALATE
     Indication: Drug therapy
     Dosage: 15 MG,QD
     Route: 048
     Dates: start: 201509
  20. ESCITALOPRAM [Concomitant]
     Active Substance: ESCITALOPRAM OXALATE
     Indication: Psychotic disorder
  21. VALTREX [Concomitant]
     Active Substance: VALACYCLOVIR HYDROCHLORIDE
     Indication: Prophylaxis
     Dosage: 500 MG,QD
     Route: 048
     Dates: start: 20160118
  22. SOLU-MEDROL [Concomitant]
     Active Substance: METHYLPREDNISOLONE SODIUM SUCCINATE
     Indication: Prophylaxis
     Dosage: 1000 MG,QD
     Route: 042
     Dates: start: 20160118, end: 20160121
  23. SOLU-MEDROL [Concomitant]
     Active Substance: METHYLPREDNISOLONE SODIUM SUCCINATE
     Dosage: 500 MG,UNK
     Route: 042
     Dates: start: 20160122, end: 20160122
  24. DIMETHINDENE [Concomitant]
     Active Substance: DIMETHINDENE
     Indication: Prophylaxis
     Dosage: 4 MG,QD
     Route: 042
     Dates: start: 20160118, end: 20160121
  25. OMEPRAZOLE [Concomitant]
     Active Substance: OMEPRAZOLE
     Indication: Prophylaxis
     Dosage: 40 MG,QD
     Route: 042
     Dates: start: 20160118, end: 20160121
  26. ACETAMINOPHEN [Concomitant]
     Active Substance: ACETAMINOPHEN
     Indication: Prophylaxis
     Dosage: 600 MG,QD
     Route: 042
     Dates: start: 20160118, end: 20160121
  27. ACETAMINOPHEN [Concomitant]
     Active Substance: ACETAMINOPHEN
     Dosage: 600 MG,QD
     Route: 042
     Dates: start: 20160124, end: 20160125
  28. ZOFRAN [Concomitant]
     Active Substance: ONDANSETRON HYDROCHLORIDE
     Indication: Prophylaxis
     Dosage: 8 MG,QD
     Route: 042
     Dates: start: 20160118, end: 20160121
  29. CETIRIZINE HYDROCHLORIDE [Concomitant]
     Active Substance: CETIRIZINE HYDROCHLORIDE
     Indication: Prophylaxis
     Dosage: 10 MG,QD
     Route: 048
     Dates: start: 20160114
  30. LUMAREN [Concomitant]
     Indication: Prophylaxis
     Dosage: 150 MG,QD
     Route: 048
     Dates: start: 20160114
  31. FOSFOMYCIN CALCIUM [Concomitant]
     Active Substance: FOSFOMYCIN CALCIUM
     Indication: Urinary tract infection
     Dosage: 3 G,QW
     Route: 048
     Dates: start: 201402

REACTIONS (9)
  - Stomatitis [Recovered/Resolved]
  - Pyrexia [Recovered/Resolved]
  - Bradycardia [Recovered/Resolved]
  - C-reactive protein increased [Recovered/Resolved]
  - Leukocytosis [Recovered/Resolved]
  - Bradycardia [Recovered/Resolved]
  - Pyrexia [Recovered/Resolved]
  - Bradycardia [Recovered/Resolved]
  - Respiratory tract infection [Recovered/Resolved]

NARRATIVE: CASE EVENT DATE: 20160118
